FAERS Safety Report 9172531 (Version 2)
Quarter: 2013Q2

REPORT INFORMATION
  Report Type: Spontaneous
  Country: US (occurrence: US)
  Receive Date: 20130319
  Receipt Date: 20130418
  Transmission Date: 20140414
  Serious: Yes (Disabling)
  Sender: FDA-Public Use
  Company Number: US-009507513-1303USA007563

PATIENT
  Age: 53 Year
  Sex: Male

DRUGS (1)
  1. PROPECIA [Suspect]
     Indication: ANDROGENETIC ALOPECIA
     Dosage: UNK
     Dates: start: 200712

REACTIONS (9)
  - Anxiety [Unknown]
  - Erectile dysfunction [Unknown]
  - Libido decreased [Unknown]
  - Libido decreased [Unknown]
  - Ejaculation failure [Unknown]
  - Testicular pain [Unknown]
  - Gynaecomastia [Unknown]
  - Depression [Unknown]
  - Cognitive disorder [Unknown]
